FAERS Safety Report 17995105 (Version 1)
Quarter: 2020Q3

REPORT INFORMATION
  Report Type: Spontaneous
  Country: PL (occurrence: PL)
  Receive Date: 20200708
  Receipt Date: 20200708
  Transmission Date: 20201103
  Serious: Yes (Hospitalization)
  Sender: FDA-Public Use
  Company Number: PL-BAYER-2020-133702

PATIENT
  Age: 61 Year
  Sex: Female
  Weight: 83 kg

DRUGS (1)
  1. ULTRAVIST [Suspect]
     Active Substance: IOPROMIDE
     Indication: URETERAL DISORDER
     Dosage: 97 ML
     Route: 042
     Dates: start: 20191211, end: 20191211

REACTIONS (7)
  - Skin necrosis [Unknown]
  - Lividity [Unknown]
  - Oedema [Unknown]
  - Injection site extravasation [Unknown]
  - Erythema [Unknown]
  - Pain [Unknown]
  - Compartment syndrome [Unknown]

NARRATIVE: CASE EVENT DATE: 20191211
